FAERS Safety Report 6579978-6 (Version None)
Quarter: 2010Q1

REPORT INFORMATION
  Report Type: 
  Country: None (occurrence: None)
  Receive Date: 20100212
  Receipt Date: 20100210
  Transmission Date: 20100710
  Serious: Yes (Death, Hospitalization)
  Sender: FDA-Public Use
  Company Number: NL-BAYER-201015287GPV

PATIENT
  Age: 63 Year
  Sex: Male

DRUGS (23)
  1. SORAFENIB [Suspect]
     Indication: RENAL CELL CARCINOMA
     Dates: start: 20100118, end: 20100207
  2. PARACETAMOL [Concomitant]
     Dates: start: 20091201
  3. DURAGESIC-100 [Concomitant]
     Dosage: 12 MCG/U
     Route: 062
     Dates: start: 20091228, end: 20100104
  4. DURAGESIC-100 [Concomitant]
     Dosage: 12 MCG/U
     Route: 062
     Dates: start: 20091231, end: 20100104
  5. DURAGESIC-100 [Concomitant]
     Dosage: 50 MCG/U
     Route: 062
     Dates: start: 20100203, end: 20100208
  6. DURAGESIC-100 [Concomitant]
     Dosage: 50 MCG/U
     Route: 062
     Dates: start: 20100104, end: 20100115
  7. LACTULOSE [Concomitant]
     Dosage: TOTAL DAILY DOSE: 30 ML
     Route: 065
     Dates: start: 20091201
  8. LISINOPRIL [Concomitant]
     Route: 048
     Dates: start: 20100203, end: 20100208
  9. LISINOPRIL [Concomitant]
     Route: 065
     Dates: start: 20091201
  10. LISINOPRIL [Concomitant]
     Route: 048
     Dates: start: 20100107, end: 20100115
  11. DEXAMETHASONE TAB [Concomitant]
     Dosage: TOTAL DAILY DOSE: 12 MG
     Route: 048
     Dates: start: 20100107, end: 20100114
  12. DEXAMETHASONE TAB [Concomitant]
     Dates: start: 20091201
  13. DEXAMETHASONE TAB [Concomitant]
     Route: 048
     Dates: start: 20100204, end: 20100205
  14. DEXAMETHASONE TAB [Concomitant]
     Dosage: TOTAL DAILY DOSE: 8 MG
     Route: 048
     Dates: start: 20100114, end: 20100115
  15. OXYNORM [Concomitant]
     Dates: start: 20091201
  16. OXAZEPAM [Concomitant]
     Dates: start: 20091201
  17. OMEPRAZOL [Concomitant]
     Dates: start: 20091201
  18. GLUCOZIDE [Concomitant]
     Dates: start: 20091201
  19. NORVASC [Concomitant]
     Route: 048
     Dates: start: 20100206, end: 20100206
  20. NORVASC [Concomitant]
     Route: 048
     Dates: start: 20100208, end: 20100208
  21. PREDNISOLON [Concomitant]
     Dosage: TOTAL DAILY DOSE: 50 MG
     Route: 042
     Dates: start: 20100205, end: 20100206
  22. METFORMIN [Concomitant]
     Route: 048
     Dates: start: 20100203, end: 20100204
  23. METFORMIN [Concomitant]
     Route: 048
     Dates: start: 20100203, end: 20100204

REACTIONS (1)
  - PNEUMONIA [None]
